FAERS Safety Report 14674938 (Version 4)
Quarter: 2018Q2

REPORT INFORMATION
  Report Type: Report from Study
  Country: CA (occurrence: CA)
  Receive Date: 20180323
  Receipt Date: 20180516
  Transmission Date: 20180711
  Serious: Yes (Other)
  Sender: FDA-Public Use
  Company Number: CA-SA-2017SA057664

PATIENT
  Age: 27 Year
  Sex: Male

DRUGS (9)
  1. TYLENOL [Concomitant]
     Active Substance: ACETAMINOPHEN
     Indication: PREMEDICATION
     Dosage: DOSE: 500-1000MG
     Route: 048
     Dates: start: 20170327
  2. LEMTRADA [Suspect]
     Active Substance: ALEMTUZUMAB
     Indication: RELAPSING-REMITTING MULTIPLE SCLEROSIS
     Route: 041
     Dates: start: 20170327, end: 20170331
  3. VIAGRA [Concomitant]
     Active Substance: SILDENAFIL CITRATE
     Route: 048
  4. BENADRYL [Concomitant]
     Active Substance: DIPHENHYDRAMINE HYDROCHLORIDE
     Indication: PREMEDICATION
     Route: 048
     Dates: start: 20170327, end: 20170331
  5. METHYLPREDNISOLONE. [Concomitant]
     Active Substance: METHYLPREDNISOLONE
     Indication: PREMEDICATION
     Route: 042
     Dates: start: 20170327, end: 20170329
  6. BACLOFEN. [Concomitant]
     Active Substance: BACLOFEN
     Indication: MUSCLE RELAXANT THERAPY
     Route: 048
  7. FAMPYRA [Concomitant]
     Active Substance: DALFAMPRIDINE
     Dosage: 2 DF
     Route: 048
  8. GRAVOL [Concomitant]
     Active Substance: DIMENHYDRINATE
     Indication: PREMEDICATION
     Route: 048
     Dates: start: 20170327, end: 20170331
  9. ACYCLOVIR. [Concomitant]
     Active Substance: ACYCLOVIR
     Indication: PREMEDICATION
     Route: 048
     Dates: start: 20170327

REACTIONS (15)
  - Cellulitis [Recovered/Resolved]
  - Back pain [Recovered/Resolved]
  - Body temperature increased [Recovered/Resolved]
  - Purulent discharge [Recovered/Resolved]
  - Fatigue [Recovered/Resolved]
  - Herpes zoster [Recovered/Resolved]
  - Swelling [Recovered/Resolved]
  - Flushing [Recovered/Resolved]
  - Euphoric mood [Recovered/Resolved]
  - Erythema [Recovered/Resolved]
  - Papule [Recovered/Resolved]
  - Hypertension [Recovered/Resolved]
  - Somnolence [Recovered/Resolved]
  - Tachycardia [Recovered/Resolved]
  - Flushing [Recovered/Resolved]

NARRATIVE: CASE EVENT DATE: 20170327
